FAERS Safety Report 19763152 (Version 4)
Quarter: 2021Q4

REPORT INFORMATION
  Report Type: Report from Study
  Country: AU (occurrence: AU)
  Receive Date: 20210830
  Receipt Date: 20211001
  Transmission Date: 20220303
  Serious: Yes (Other)
  Sender: FDA-Public Use
  Company Number: AU-PFIZER INC-202101089478

PATIENT
  Age: 63 Year
  Sex: Male

DRUGS (2)
  1. MEROPENEM [Suspect]
     Active Substance: MEROPENEM
     Indication: Cellulitis
     Dosage: UNK
     Route: 042
     Dates: start: 20191118, end: 20191127
  2. VANCOMYCIN HYDROCHLORIDE [Suspect]
     Active Substance: VANCOMYCIN HYDROCHLORIDE
     Indication: Cellulitis
     Dosage: UNK
     Route: 042
     Dates: start: 20191118, end: 20191127

REACTIONS (5)
  - Drug reaction with eosinophilia and systemic symptoms [Recovered/Resolved]
  - Hepatitis [Recovered/Resolved]
  - Periorbital oedema [Recovered/Resolved]
  - Rash maculo-papular [Unknown]
  - Eosinophilia [Unknown]

NARRATIVE: CASE EVENT DATE: 20191125
